FAERS Safety Report 4292304-0 (Version None)
Quarter: 2004Q1

REPORT INFORMATION
  Report Type: 
  Country: None (occurrence: None)
  Receive Date: 20040211
  Receipt Date: 20040106
  Transmission Date: 20041129
  Serious: Yes (Other)
  Sender: FDA-Public Use
  Company Number: NL-ROCHE-358344

PATIENT
  Age: 57 Year
  Sex: Male

DRUGS (1)
  1. ROCALTROL [Suspect]
     Indication: DRUG USE FOR UNKNOWN INDICATION
     Route: 048
     Dates: start: 20020615

REACTIONS (1)
  - BLOOD TESTOSTERONE DECREASED [None]
